FAERS Safety Report 13888135 (Version 1)
Quarter: 2017Q3

REPORT INFORMATION
  Report Type: Spontaneous
  Country: US (occurrence: US)
  Receive Date: 20170822
  Receipt Date: 20170822
  Transmission Date: 20171127
  Serious: No
  Sender: FDA-Public Use
  Company Number: US-ROCHE-1402569

PATIENT
  Sex: Female

DRUGS (1)
  1. ACTEMRA [Suspect]
     Active Substance: TOCILIZUMAB
     Indication: RHEUMATOID ARTHRITIS
     Route: 058
     Dates: start: 20140314

REACTIONS (6)
  - Oral pain [Unknown]
  - Herpes virus infection [Unknown]
  - Migraine [Unknown]
  - Dry mouth [Unknown]
  - Urinary tract infection [Unknown]
  - Blister [Unknown]
